FAERS Safety Report 7904430-2 (Version None)
Quarter: 2011Q4

REPORT INFORMATION
  Report Type: 
  Country: None (occurrence: None)
  Receive Date: 20111109
  Receipt Date: 20111031
  Transmission Date: 20120403
  Serious: Yes (Hospitalization)
  Sender: FDA-Public Use
  Company Number: TR-MEDIMMUNE-MEDI-0013831

PATIENT
  Sex: Male
  Weight: 8 kg

DRUGS (3)
  1. SYNAGIS [Suspect]
     Route: 030
     Dates: start: 20111020, end: 20111020
  2. LEVOTHYROXINE SODIUM [Concomitant]
     Route: 048
  3. ALBUTEROL SULFATE AUTOHALER [Concomitant]
     Route: 055

REACTIONS (5)
  - COUGH [None]
  - INSOMNIA [None]
  - DYSPNOEA [None]
  - WHEEZING [None]
  - LUNG DISORDER [None]
